FAERS Safety Report 9109945 (Version 2)
Quarter: 2013Q1

REPORT INFORMATION
  Report Type: Report from Study
  Country: FR (occurrence: FR)
  Receive Date: 20130222
  Receipt Date: 20130319
  Transmission Date: 20140127
  Serious: Yes (Hospitalization)
  Sender: FDA-Public Use
  Company Number: FR-PFIZER INC-2012039083

PATIENT
  Age: 65 Year
  Sex: Male
  Weight: 86 kg

DRUGS (14)
  1. BLINDED AXITINIB [Suspect]
     Indication: HEPATIC CANCER
     Dosage: 10 MG, 2X/DAY
     Route: 048
     Dates: start: 20120117, end: 20120214
  2. BLINDED AXITINIB [Suspect]
     Indication: HEPATIC CANCER
     Dosage: 10 MG, 2X/DAY
     Route: 048
     Dates: start: 20120117, end: 20120214
  3. BLINDED PLACEBO [Suspect]
     Indication: HEPATIC CANCER
     Dosage: 10 MG, 2X/DAY
     Route: 048
     Dates: start: 20120117, end: 20120214
  4. BLINDED PLACEBO [Suspect]
     Indication: HEPATIC CANCER
     Dosage: 10 MG, 2X/DAY
     Route: 048
     Dates: start: 20120117, end: 20120214
  5. XANAX [Suspect]
     Indication: ANXIETY
     Dosage: 0.5 MG, 1X/DAY
     Route: 048
     Dates: start: 20100716
  6. AMLOR [Concomitant]
     Indication: HYPERTENSION
     Dosage: 5 MG, 1X/DAY
     Route: 048
  7. LOXEN [Concomitant]
     Indication: HYPERTENSION
     Dosage: 50 MG, 1X/DAY
     Route: 048
  8. TRAMADOL - SLOW RELEASE [Concomitant]
     Indication: PAIN
     Dosage: 100 MG, 1X/DAY
     Route: 048
  9. LASILIX [Concomitant]
     Indication: HYPERTENSION
     Dosage: 20 MG, 1X/DAY
     Route: 048
  10. INEXIUM [Concomitant]
     Dosage: 40 MG, 1X/DAY
     Route: 048
  11. ATARAX [Concomitant]
     Indication: ANXIETY
     Dosage: 50 MG, 1X/DAY
     Route: 048
  12. SEROPLEX [Concomitant]
     Indication: DEPRESSION
     Dosage: 10 MG, 1X/DAY
     Route: 048
  13. CETIRIZINE [Concomitant]
     Dosage: 5 MG, 1X/DAY
     Route: 048
  14. AVLOCARDYL [Concomitant]
     Indication: HYPERTENSION
     Dosage: 160 MG, 1X/DAY
     Route: 048

REACTIONS (1)
  - Hepatic encephalopathy [Recovered/Resolved]
